APPROVED DRUG PRODUCT: POTASSIUM CHLORIDE 30MEQ IN PLASTIC CONTAINER
Active Ingredient: POTASSIUM CHLORIDE
Strength: 2.24GM/100ML
Dosage Form/Route: INJECTABLE;INJECTION
Application: N020161 | Product #003
Applicant: OTSUKA ICU MEDICAL LLC
Approved: Aug 11, 1998 | RLD: Yes | RS: No | Type: DISCN